FAERS Safety Report 10300291 (Version 1)
Quarter: 2014Q3

REPORT INFORMATION
  Report Type: Spontaneous
  Country: US (occurrence: US)
  Receive Date: 20140712
  Receipt Date: 20140712
  Transmission Date: 20150326
  Serious: Yes (Life-Threatening, Hospitalization, Other)
  Sender: FDA-Public Use
  Company Number: US-JNJFOC-20140702968

PATIENT
  Age: 3 Year
  Sex: Male

DRUGS (1)
  1. VISINE [Suspect]
     Active Substance: TETRAHYDROZOLINE HYDROCHLORIDE
     Indication: POISONING
     Route: 048

REACTIONS (4)
  - Toxicity to various agents [Unknown]
  - Incorrect route of drug administration [Unknown]
  - Heart rate decreased [Unknown]
  - Malaise [Unknown]
